FAERS Safety Report 12501442 (Version 4)
Quarter: 2016Q3

REPORT INFORMATION
  Report Type: Report from Study
  Country: US (occurrence: US)
  Receive Date: 20160627
  Receipt Date: 20160914
  Transmission Date: 20161109
  Serious: Yes (Hospitalization, Other)
  Sender: FDA-Public Use
  Company Number: US-BAYER-2016-123958

PATIENT
  Sex: Female
  Weight: 75.74 kg

DRUGS (5)
  1. ADEMPAS [Suspect]
     Active Substance: RIOCIGUAT
     Indication: PULMONARY ARTERIAL HYPERTENSION
     Dosage: 2 MG, TID
     Route: 048
  2. VELETRI [Concomitant]
     Active Substance: EPOPROSTENOL
  3. ADEMPAS [Suspect]
     Active Substance: RIOCIGUAT
     Indication: PULMONARY ARTERIAL HYPERTENSION
     Dosage: 2.5 MG, TID
     Route: 048
  4. ADEMPAS [Suspect]
     Active Substance: RIOCIGUAT
     Indication: PULMONARY ARTERIAL HYPERTENSION
     Dosage: 1 MG, TID
     Route: 048
  5. ADEMPAS [Suspect]
     Active Substance: RIOCIGUAT
     Indication: PULMONARY ARTERIAL HYPERTENSION
     Dosage: UNK
     Dates: start: 20160607

REACTIONS (10)
  - Hypotension [None]
  - Gastrooesophageal reflux disease [None]
  - Vomiting [None]
  - Abdominal pain upper [None]
  - Oxygen saturation decreased [None]
  - Dyspnoea at rest [Unknown]
  - Dizziness exertional [Unknown]
  - Heart rate irregular [None]
  - Dyspnoea [None]
  - Nausea [None]
